FAERS Safety Report 15415386 (Version 2)
Quarter: 2018Q4

REPORT INFORMATION
  Report Type: Report from Study
  Country: US (occurrence: US)
  Receive Date: 20180921
  Receipt Date: 20181009
  Transmission Date: 20190204
  Serious: No
  Sender: FDA-Public Use
  Company Number: PHEH2018US039576

PATIENT
  Sex: Female
  Weight: 54.42 kg

DRUGS (1)
  1. COSENTYX [Suspect]
     Active Substance: SECUKINUMAB
     Indication: RHEUMATOID ARTHRITIS
     Dosage: 300 MG, QMO
     Route: 058
     Dates: start: 201808

REACTIONS (3)
  - Product use in unapproved indication [Unknown]
  - Infection [Unknown]
  - Localised infection [Not Recovered/Not Resolved]
